FAERS Safety Report 11415661 (Version 3)
Quarter: 2015Q4

REPORT INFORMATION
  Report Type: Report from Study
  Country: US (occurrence: US)
  Receive Date: 20150825
  Receipt Date: 20151006
  Transmission Date: 20160304
  Serious: Yes (Death)
  Sender: FDA-Public Use
  Company Number: US-BIOGENIDEC-2015BI112247

PATIENT
  Age: 43 Year
  Sex: Male

DRUGS (13)
  1. TIZANIDINE. [Concomitant]
     Active Substance: TIZANIDINE
     Indication: MULTIPLE SCLEROSIS
     Dates: start: 20141022, end: 20150810
  2. LYRICA [Concomitant]
     Active Substance: PREGABALIN
     Indication: MULTIPLE SCLEROSIS
     Route: 048
     Dates: start: 2013, end: 20150810
  3. PLEGRIDY [Suspect]
     Active Substance: PEGINTERFERON BETA-1A
     Indication: RELAPSING-REMITTING MULTIPLE SCLEROSIS
     Route: 058
     Dates: start: 20150112, end: 20150727
  4. HYDROCODONE [Concomitant]
     Active Substance: HYDROCODONE
     Indication: BACK PAIN
     Route: 048
     Dates: start: 2013, end: 20150810
  5. BACLOFEN. [Concomitant]
     Active Substance: BACLOFEN
     Indication: MULTIPLE SCLEROSIS
     Route: 048
     Dates: start: 2012, end: 20150810
  6. RITUXAN [Concomitant]
     Active Substance: RITUXIMAB
     Indication: MULTIPLE SCLEROSIS
     Route: 042
     Dates: start: 20150722, end: 20150805
  7. MARINOL [Concomitant]
     Active Substance: DRONABINOL
     Indication: WEIGHT DECREASED
     Dates: start: 20140522, end: 20150810
  8. RITUXAN [Concomitant]
     Active Substance: RITUXIMAB
     Indication: MULTIPLE SCLEROSIS
     Route: 042
     Dates: start: 20150722, end: 20150805
  9. HYDROCODONE [Concomitant]
     Active Substance: HYDROCODONE
     Indication: DECUBITUS ULCER
     Route: 048
     Dates: start: 2013, end: 20150810
  10. MARINOL [Concomitant]
     Active Substance: DRONABINOL
     Indication: DECREASED APPETITE
     Dates: start: 20140522, end: 20150810
  11. FENTANYL. [Concomitant]
     Active Substance: FENTANYL
     Indication: PAIN
     Dates: start: 20150722, end: 20150810
  12. FENTANYL. [Concomitant]
     Active Substance: FENTANYL
     Indication: DECUBITUS ULCER
     Dates: start: 20150722, end: 20150810
  13. DIAZEPAM. [Concomitant]
     Active Substance: DIAZEPAM
     Indication: MULTIPLE SCLEROSIS
     Route: 048
     Dates: end: 20150810

REACTIONS (1)
  - Respiratory failure [Fatal]

NARRATIVE: CASE EVENT DATE: 20150810
